FAERS Safety Report 4554202-4 (Version None)
Quarter: 2005Q1

REPORT INFORMATION
  Report Type: 
  Country: None (occurrence: None)
  Receive Date: 20050118
  Receipt Date: 20030415
  Transmission Date: 20050727
  Serious: Yes (Life-Threatening, Hospitalization)
  Sender: FDA-Public Use
  Company Number: US-BRISTOL-MYERS SQUIBB COMPANY-12240719

PATIENT
  Age: 62 Year
  Sex: Male

DRUGS (4)
  1. TAXOL [Suspect]
     Indication: NON-SMALL CELL LUNG CANCER
     Route: 042
     Dates: start: 20030319, end: 20030319
  2. CISPLATIN [Suspect]
     Indication: NON-SMALL CELL LUNG CANCER
     Route: 042
     Dates: start: 20030319, end: 20030319
  3. BNP7787 [Suspect]
     Indication: NEUROTOXICITY
     Dates: start: 20030319, end: 20030319
  4. TRAMADOL HCL [Concomitant]
     Indication: PAIN
     Dates: start: 20030201, end: 20030320

REACTIONS (1)
  - MYOCARDIAL ISCHAEMIA [None]
